FAERS Safety Report 4768209-5 (Version None)
Quarter: 2005Q3

REPORT INFORMATION
  Report Type: 
  Country: None (occurrence: None)
  Receive Date: 20050914
  Receipt Date: 20050706
  Transmission Date: 20060218
  Serious: Yes (Death, Other)
  Sender: FDA-Public Use
  Company Number: HK-ABBOTT-05P-075-0305498-00

PATIENT
  Age: 88 Year
  Sex: Female

DRUGS (7)
  1. CLARITHROMYCIN [Suspect]
     Indication: PNEUMONIA
     Route: 048
     Dates: start: 20030711, end: 20030716
  2. COLCHICINE [Interacting]
     Indication: GOUT
     Route: 048
     Dates: start: 20030713, end: 20030715
  3. ADALAT [Concomitant]
     Indication: HYPERTENSION
  4. FUROSEMIDE [Concomitant]
     Indication: CARDIAC FAILURE
  5. POTASSIUM CHLORIDE [Concomitant]
     Indication: HYPOKALAEMIA
  6. CEFTRIAXONE [Concomitant]
     Indication: PNEUMONIA
     Route: 042
     Dates: start: 20030704, end: 20030714
  7. LEVOFLOXACIN [Concomitant]
     Indication: PNEUMONIA
     Route: 042
     Dates: start: 20030722, end: 20030724

REACTIONS (5)
  - DRUG INTERACTION [None]
  - DRUG TOXICITY [None]
  - GOUT [None]
  - HEPATIC FUNCTION ABNORMAL [None]
  - PANCYTOPENIA [None]
